FAERS Safety Report 10498001 (Version 5)
Quarter: 2015Q3

REPORT INFORMATION
  Report Type: Spontaneous
  Country: CA (occurrence: CA)
  Receive Date: 20141006
  Receipt Date: 20150805
  Transmission Date: 20151125
  Serious: Yes (Hospitalization, Other)
  Sender: FDA-Public Use
  Company Number: CA-ASTELLAS-2014US013964

PATIENT
  Age: 57 Year
  Sex: Female

DRUGS (2)
  1. ADVAGRAF [Suspect]
     Active Substance: TACROLIMUS
     Indication: RENAL TRANSPLANT
     Dosage: 6 MG (2 X 3 MG PILLS), ONCE DAILY
     Route: 048
     Dates: start: 20140915
  2. ADVAGRAF [Suspect]
     Active Substance: TACROLIMUS
     Dosage: 5 MG (5 X 1 MG PILLS), ONCE DAILY
     Route: 048

REACTIONS (7)
  - Kidney infection [Unknown]
  - Post procedural infection [Recovering/Resolving]
  - Malaise [Unknown]
  - Renal disorder [Unknown]
  - Influenza [Unknown]
  - Pain [Unknown]
  - Malaise [Unknown]

NARRATIVE: CASE EVENT DATE: 2014
